FAERS Safety Report 4927822-2 (Version None)
Quarter: 2006Q1

REPORT INFORMATION
  Report Type: 
  Country: None (occurrence: None)
  Receive Date: 20060127
  Receipt Date: 20051229
  Transmission Date: 20060701
  Serious: Yes (Other)
  Sender: FDA-Public Use
  Company Number: 2006002811

PATIENT
  Age: 39 Year
  Sex: Female
  Weight: 65.7716 kg

DRUGS (5)
  1. LYRICA [Suspect]
     Indication: MIGRAINE
     Dosage: 200 MG (100 MG, 2 IN 1 D) ORAL
     Route: 048
     Dates: start: 20051206
  2. MEDROL [Concomitant]
  3. LEVOXYL [Concomitant]
  4. ACTONEL [Concomitant]
  5. TOPAMAX (TOPORAMATE) [Concomitant]

REACTIONS (1)
  - VEIN DISORDER [None]
